FAERS Safety Report 6706546-5 (Version None)
Quarter: 2010Q2

REPORT INFORMATION
  Report Type: 
  Country: None (occurrence: None)
  Receive Date: 20100423
  Receipt Date: 20091211
  Transmission Date: 20101027
  Serious: No
  Sender: FDA-Public Use
  Company Number: ALL1-2009-04004

PATIENT
  Age: 16 Year
  Sex: Male
  Weight: 49.9 kg

DRUGS (3)
  1. VYVANSE [Suspect]
     Indication: ATTENTION DEFICIT/HYPERACTIVITY DISORDER
     Dosage: 20 MG, 1X/DAY:QD, ORAL, 40 MG, 1X/DAY:QD, ORAL
     Route: 048
     Dates: start: 20091124, end: 20091201
  2. VYVANSE [Suspect]
     Indication: ATTENTION DEFICIT/HYPERACTIVITY DISORDER
     Dosage: 20 MG, 1X/DAY:QD, ORAL, 40 MG, 1X/DAY:QD, ORAL
     Route: 048
     Dates: start: 20091201
  3. CELEX /00582602/ (CITALOPRAM HYDROBROMIDE) [Concomitant]

REACTIONS (2)
  - OFF LABEL USE [None]
  - SLEEP DISORDER [None]
